FAERS Safety Report 5981842-8 (Version None)
Quarter: 2008Q4

REPORT INFORMATION
  Report Type: 
  Country: None (occurrence: None)
  Receive Date: 20081202
  Receipt Date: 20081117
  Transmission Date: 20090506
  Serious: Yes (Disabling)
  Sender: FDA-Public Use
  Company Number: 2008002000

PATIENT
  Age: 65 Year
  Sex: Male
  Weight: 101.6 kg

DRUGS (29)
  1. ERLOTINIB (ERLOTINIB) (TABLET) (ERLOTINIB) [Suspect]
     Indication: NON-SMALL CELL LUNG CANCER
     Dosage: ORAL
     Route: 048
     Dates: start: 20080105, end: 20080731
  2. BEVACUZUMAB [Suspect]
     Indication: NON-SMALL CELL LUNG CANCER
     Dosage: INTRAVENOUS
     Route: 042
  3. CARBOPLATIN [Suspect]
     Dates: start: 20070928, end: 20071130
  4. TAXOL [Suspect]
     Dates: start: 20070928, end: 20071130
  5. LIPITOR [Concomitant]
  6. LOTREL [Concomitant]
  7. MOTRIN [Concomitant]
  8. VICODIN [Concomitant]
  9. GLUCOSAMINE (GLUCOSAMINE) [Concomitant]
  10. CHONDROITIN SULFATE (CHONDROITIN SULFATE) [Concomitant]
  11. DYAZIDE [Concomitant]
  12. PROTONIX [Concomitant]
  13. SENNA (SENNA) [Concomitant]
  14. FLOMAX (MORNIFLUMATE) [Concomitant]
  15. OXYCONTIN [Concomitant]
  16. DEXAMETHASONE TAB [Concomitant]
  17. GLAUCOMA MEDICATION NOS (ANTIGLAUCOMA PREPARATIONS AND MIOTICS) [Concomitant]
  18. LUMIGAN [Concomitant]
  19. CELEXA [Concomitant]
  20. ATIVAN [Concomitant]
  21. COUMADIN [Concomitant]
  22. LYCOPENE [Concomitant]
  23. PYGEUM AFRICANUM EXTRACT [Concomitant]
  24. SAW PALMETTO (SENRE REPENS) [Concomitant]
  25. STINGING NETTLE [Concomitant]
  26. ACETAMINOPHEN [Concomitant]
  27. HYDROCODONE BITARTRATE (HYDROCODONE BITARTRATE) [Concomitant]
  28. XALATAN [Concomitant]
  29. LOVENOX [Concomitant]

REACTIONS (8)
  - BENIGN PROSTATIC HYPERPLASIA [None]
  - CATARACT [None]
  - GLAUCOMA [None]
  - IMPAIRED DRIVING ABILITY [None]
  - OPTIC ATROPHY [None]
  - OPTIC NEUROPATHY [None]
  - RASH [None]
  - VISION BLURRED [None]
